FAERS Safety Report 14241878 (Version 3)
Quarter: 2018Q2

REPORT INFORMATION
  Report Type: Report from Study
  Country: GB (occurrence: GB)
  Receive Date: 20171201
  Receipt Date: 20180412
  Transmission Date: 20180711
  Serious: Yes (Other)
  Sender: FDA-Public Use
  Company Number: GB-ROCHE-1958539

PATIENT
  Sex: Female

DRUGS (1)
  1. ROACTEMRA [Suspect]
     Active Substance: TOCILIZUMAB
     Indication: RHEUMATOID ARTHRITIS
     Route: 058
     Dates: start: 20160111

REACTIONS (13)
  - Renal disorder [Unknown]
  - Nephrolithiasis [Unknown]
  - Rheumatoid arthritis [Unknown]
  - Infection [Unknown]
  - Feeling cold [Unknown]
  - Malaise [Unknown]
  - Chest pain [Unknown]
  - Hyperhidrosis [Unknown]
  - Nausea [Unknown]
  - Tooth fracture [Unknown]
  - Hiatus hernia [Unknown]
  - Pain [Unknown]
  - Feeling hot [Unknown]
